FAERS Safety Report 5217901-7 (Version None)
Quarter: 2007Q1

REPORT INFORMATION
  Report Type: 
  Country: None (occurrence: None)
  Receive Date: 20070124
  Receipt Date: 20070115
  Transmission Date: 20070707
  Serious: Yes (Hospitalization)
  Sender: FDA-Public Use
  Company Number: SE-ABBOTT-07P-150-0355820-00

PATIENT
  Age: 30 Year
  Sex: Female

DRUGS (2)
  1. HUMIRA [Suspect]
     Indication: JUVENILE ARTHRITIS
     Route: 058
     Dates: start: 20060801, end: 20061201
  2. ETANERCEPT [Suspect]
     Indication: JUVENILE ARTHRITIS
     Route: 050
     Dates: start: 20010701, end: 20060801

REACTIONS (6)
  - ASCITES [None]
  - CHILLS [None]
  - GASTROINTESTINAL CARCINOMA [None]
  - NAUSEA [None]
  - PYREXIA [None]
  - VOMITING [None]
